FAERS Safety Report 21189861 (Version 1)
Quarter: 2022Q3

REPORT INFORMATION
  Report Type: Spontaneous
  Country: AR (occurrence: AR)
  Receive Date: 20220809
  Receipt Date: 20220809
  Transmission Date: 20221027
  Serious: Yes (Other)
  Sender: FDA-Public Use
  Company Number: AR-PFIZER INC-PV202200037321

PATIENT
  Age: 65 Year
  Sex: Male

DRUGS (1)
  1. VIZIMPRO [Suspect]
     Active Substance: DACOMITINIB
     Indication: Lung cancer metastatic
     Dosage: 15 MG, DAILY
     Dates: start: 20210821

REACTIONS (2)
  - Skin toxicity [Recovered/Resolved]
  - Ulcer [Recovered/Resolved]
